FAERS Safety Report 4357010-2 (Version None)
Quarter: 2004Q2

REPORT INFORMATION
  Report Type: 
  Country: None (occurrence: None)
  Receive Date: 20040512
  Receipt Date: 20040507
  Transmission Date: 20050107
  Serious: Yes (Hospitalization)
  Sender: FDA-Public Use
  Company Number: PHBS2004CH06142

PATIENT
  Age: 54 Year
  Sex: Female

DRUGS (6)
  1. ENTUMIN [Suspect]
     Indication: AGITATION
     Dosage: 80 MG/D
     Route: 030
     Dates: start: 20040428
  2. CLOZAPINE [Suspect]
     Indication: HALLUCINATION, AUDITORY
     Dosage: 50 MG/D
     Route: 065
  3. CLOZAPINE [Suspect]
     Dosage: UNK, ONCE/SINGLE
     Route: 065
     Dates: start: 20040428, end: 20040428
  4. TRANXILIUM [Suspect]
     Dosage: 5 MG/D
     Route: 065
     Dates: start: 20040428
  5. CABERGOLINE [Concomitant]
     Dosage: 4 MG/D
     Route: 065
  6. AKINETON RETARD [Concomitant]
     Dosage: 2 MG/D
     Route: 065

REACTIONS (4)
  - AGITATION [None]
  - HALLUCINATION, AUDITORY [None]
  - MEDICATION ERROR [None]
  - SOMNOLENCE [None]
